FAERS Safety Report 8958905 (Version 1)
Quarter: 2012Q4

REPORT INFORMATION
  Report Type: Report from Study
  Country: IT (occurrence: IT)
  Receive Date: 20121212
  Receipt Date: 20121212
  Transmission Date: 20130627
  Serious: Yes (Hospitalization)
  Sender: FDA-Public Use
  Company Number: IT-009507513-1212ITA003956

PATIENT
  Age: 69 Year
  Sex: Male

DRUGS (3)
  1. BOCEPREVIR [Suspect]
     Indication: HEPATITIS C
     Dosage: 2.4 g, qd
     Route: 048
     Dates: start: 20120525
  2. RIBAVIRIN [Suspect]
     Dosage: 400 mg, qd
  3. PEGINTRON [Suspect]
     Dosage: 120 Microgram, qw

REACTIONS (1)
  - Pneumonia [Unknown]
